FAERS Safety Report 10070563 (Version 6)
Quarter: 2014Q3

REPORT INFORMATION
  Report Type: Spontaneous
  Country: US (occurrence: US)
  Receive Date: 20140410
  Receipt Date: 20140820
  Transmission Date: 20150326
  Serious: Yes (Hospitalization, Other)
  Sender: FDA-Public Use
  Company Number: US-PFIZER INC-2014097331

PATIENT
  Age: 85 Year
  Sex: Male
  Weight: 56.69 kg

DRUGS (13)
  1. FOLIC ACID. [Concomitant]
     Active Substance: FOLIC ACID
  2. LASIX [Concomitant]
     Active Substance: FUROSEMIDE
     Dosage: UNK
  3. VITAMIN D [Concomitant]
     Active Substance: CHOLECALCIFEROL
     Dosage: UNK, WEEKLY
  4. ENALAPRIL [Concomitant]
     Active Substance: ENALAPRIL
     Dosage: UNK
  5. VIT B1 [Concomitant]
  6. ESCITALOPRAM [Concomitant]
     Active Substance: ESCITALOPRAM OXALATE
  7. COUMADIN [Suspect]
     Active Substance: WARFARIN SODIUM
     Dosage: UNK
  8. HYDROCODONE [Concomitant]
     Active Substance: HYDROCODONE
     Indication: PROCEDURAL PAIN
     Dosage: UNK, AS NEEDED
  9. SUTENT [Suspect]
     Active Substance: SUNITINIB MALATE
     Dosage: 50 MG, CYCLIC (DAILY X 14 DAYS)
     Dates: start: 20140419, end: 20140523
  10. VITAMIN B12 [Concomitant]
     Active Substance: CYANOCOBALAMIN
  11. FERROUS SULFATE [Concomitant]
     Active Substance: FERROUS SULFATE\FERROUS SULFATE, DRIED
  12. SUTENT [Suspect]
     Active Substance: SUNITINIB MALATE
     Indication: RENAL CANCER
     Dosage: 50 MG, CYCLIC (DAILY FOR 2 WEEKS ON AND 1 WEEK OFF)
  13. IRON [Concomitant]
     Active Substance: IRON

REACTIONS (17)
  - Gastrointestinal haemorrhage [Unknown]
  - Weight decreased [Unknown]
  - Nausea [Unknown]
  - Anaemia [Unknown]
  - Blood creatinine increased [Unknown]
  - Oligodipsia [Unknown]
  - Dysgeusia [Unknown]
  - Depression [Unknown]
  - Decreased appetite [Unknown]
  - Asthenia [Unknown]
  - Renal cancer [Unknown]
  - Inguinal hernia [Unknown]
  - Urinary retention [Unknown]
  - International normalised ratio increased [Unknown]
  - Fatigue [Not Recovered/Not Resolved]
  - Platelet count decreased [Unknown]
  - Disease progression [Unknown]

NARRATIVE: CASE EVENT DATE: 201404
